FAERS Safety Report 5483858-7 (Version None)
Quarter: 2007Q4

REPORT INFORMATION
  Report Type: 
  Country: None (occurrence: None)
  Receive Date: 20071009
  Receipt Date: 20070927
  Transmission Date: 20080405
  Serious: Yes (Life-Threatening, Other)
  Sender: FDA-Public Use
  Company Number: 2007-00510

PATIENT
  Age: 61 Year
  Sex: Female
  Weight: 50 kg

DRUGS (14)
  1. VELCADE [Suspect]
     Indication: MULTIPLE MYELOMA
     Dosage: 1.80 MG, INTRAVENOUS
     Route: 042
     Dates: start: 20061211, end: 20070323
  2. DEXAMETHASONE TAB [Suspect]
     Indication: MULTIPLE MYELOMA
     Dosage: 20.00 MG, INTRAVENOUS
     Route: 042
     Dates: start: 20070105, end: 20070324
  3. PREDNISOLONE [Suspect]
     Indication: BRONCHITIS
     Dosage: 10.00 MG, ORAL
     Route: 048
     Dates: start: 20070104
  4. BAKTAR (SULFAMETHOXAZOLE, TRIMETHOPRIM) [Concomitant]
  5. DIFLUCAN [Concomitant]
  6. ALENDRONATE SODIUM [Concomitant]
  7. ALLOPURINOL [Concomitant]
  8. SELBEX (TEPRENONE) [Concomitant]
  9. NIZATIDINE [Concomitant]
  10. MAGNESIUM OXIDE (MAGNESIUM OXIDE) [Concomitant]
  11. ZOMETA [Concomitant]
  12. LASIX [Concomitant]
  13. PENTAZOCINE LACTATE [Concomitant]
  14. PLATELETS [Concomitant]

REACTIONS (16)
  - ANAEMIA [None]
  - BLOOD LACTATE DEHYDROGENASE INCREASED [None]
  - C-REACTIVE PROTEIN INCREASED [None]
  - DEEP VEIN THROMBOSIS [None]
  - DISEASE PROGRESSION [None]
  - HYPERAMYLASAEMIA [None]
  - HYPERCALCAEMIA [None]
  - HYPERGLYCAEMIA [None]
  - HYPERKALAEMIA [None]
  - HYPERURICAEMIA [None]
  - HYPOAESTHESIA [None]
  - LYMPHOPENIA [None]
  - PLATELET COUNT DECREASED [None]
  - PULMONARY EMBOLISM [None]
  - PULMONARY INFARCTION [None]
  - RESPIRATORY FAILURE [None]
